FAERS Safety Report 15301621 (Version 1)
Quarter: 2018Q3

REPORT INFORMATION
  Report Type: Spontaneous
  Country: JP (occurrence: JP)
  Receive Date: 20180821
  Receipt Date: 20180821
  Transmission Date: 20181010
  Serious: Yes (Other)
  Sender: FDA-Public Use
  Company Number: JP-PFIZER INC-2018330024

PATIENT
  Age: 84 Year
  Sex: Female

DRUGS (1)
  1. SOLU?CORTEF [Suspect]
     Active Substance: HYDROCORTISONE SODIUM SUCCINATE
     Indication: CONTRAST MEDIA ALLERGY
     Dosage: LESS THAN 250 MG

REACTIONS (3)
  - Incorrect drug administration rate [Unknown]
  - Hypothermia [Recovered/Resolved]
  - Underdose [Unknown]
